FAERS Safety Report 18473010 (Version 1)
Quarter: 2020Q4

REPORT INFORMATION
  Report Type: Spontaneous
  Country: US (occurrence: US)
  Receive Date: 20201105
  Receipt Date: 20201105
  Transmission Date: 20210114
  Serious: Yes (Disabling)
  Sender: FDA-Public Use
  Company Number: None

PATIENT
  Age: 25 Year
  Sex: Male
  Weight: 83.25 kg

DRUGS (1)
  1. CIPROFLOXACIN. [Suspect]
     Active Substance: CIPROFLOXACIN
     Indication: PROSTATITIS
     Route: 048
     Dates: start: 20201103, end: 20201104

REACTIONS (10)
  - Paraesthesia [None]
  - Nausea [None]
  - Pruritus [None]
  - Dizziness [None]
  - Burning sensation [None]
  - Anxiety [None]
  - Depressed level of consciousness [None]
  - Initial insomnia [None]
  - Tremor [None]
  - Arthralgia [None]

NARRATIVE: CASE EVENT DATE: 20201103
